FAERS Safety Report 22304300 (Version 2)
Quarter: 2023Q2

REPORT INFORMATION
  Report Type: Spontaneous
  Country: IT (occurrence: IT)
  Receive Date: 20230510
  Receipt Date: 20230522
  Transmission Date: 20230722
  Serious: Yes (Hospitalization)
  Sender: FDA-Public Use
  Company Number: None

PATIENT
  Age: 55 Year
  Sex: Female

DRUGS (3)
  1. CYMBALTA [Suspect]
     Active Substance: DULOXETINE HYDROCHLORIDE
     Indication: Intentional self-injury
     Dosage: 840 MG, UNKNOWN
     Route: 048
     Dates: start: 20230430, end: 20230430
  2. ZOLOFT [Suspect]
     Active Substance: SERTRALINE HYDROCHLORIDE
     Indication: Intentional self-injury
     Dosage: 1500 MG, UNKNOWN
     Route: 048
     Dates: start: 20230430, end: 20230430
  3. EN [Suspect]
     Active Substance: DELORAZEPAM
     Indication: Intentional self-injury
     Dosage: 38 MG, UNKNOWN
     Route: 048
     Dates: start: 20230430, end: 20230430

REACTIONS (3)
  - Drug abuse [Recovering/Resolving]
  - Confusional state [Recovering/Resolving]
  - Somnolence [Recovering/Resolving]

NARRATIVE: CASE EVENT DATE: 20230430
